FAERS Safety Report 7443669-X (Version None)
Quarter: 2011Q2

REPORT INFORMATION
  Report Type: 
  Country: None (occurrence: None)
  Receive Date: 20110428
  Receipt Date: 20101028
  Transmission Date: 20111010
  Serious: No
  Sender: FDA-Public Use
  Company Number: US-SANOFI-AVENTIS-2010SA066644

PATIENT
  Age: 39 Year
  Sex: Male
  Weight: 81.81 kg

DRUGS (2)
  1. CLOMID [Suspect]
     Indication: INFERTILITY MALE
     Route: 048
     Dates: start: 20100901
  2. TESTIM [Suspect]
     Indication: BLOOD TESTOSTERONE DECREASED
     Route: 062
     Dates: start: 20100901

REACTIONS (4)
  - HYPERTENSION [None]
  - BODY TEMPERATURE INCREASED [None]
  - JOINT STIFFNESS [None]
  - EAR DISCOMFORT [None]
